FAERS Safety Report 18411044 (Version 2)
Quarter: 2020Q4

REPORT INFORMATION
  Report Type: Spontaneous
  Country: US (occurrence: US)
  Receive Date: 20201021
  Receipt Date: 20201029
  Transmission Date: 20210114
  Serious: No
  Sender: FDA-Public Use
  Company Number: US-PFIZER INC-2020405979

PATIENT
  Age: 63 Year
  Sex: Female

DRUGS (1)
  1. XELJANZ [Suspect]
     Active Substance: TOFACITINIB CITRATE
     Dosage: 5 MG, 2X/DAY (TAKE 1 TABLET BY ORAL ROUTE 2 TIMES EVERY DAY, QTY: 180 (ONE HUNDRED EIGHTY))
     Route: 048

REACTIONS (1)
  - Confusional state [Unknown]
